FAERS Safety Report 23359567 (Version 3)
Quarter: 2024Q2

REPORT INFORMATION
  Report Type: Report from Study
  Country: GB (occurrence: GB)
  Receive Date: 20240103
  Receipt Date: 20240410
  Transmission Date: 20240716
  Serious: Yes (Other)
  Sender: FDA-Public Use
  Company Number: GB-SANDOZ-SDZ2023GB058797

PATIENT
  Sex: Female

DRUGS (1)
  1. OMNITROPE [Suspect]
     Active Substance: SOMATROPIN
     Indication: Growth hormone deficiency
     Dosage: 0.1 MG
     Route: 058

REACTIONS (7)
  - Suicidal ideation [Unknown]
  - Illness [Unknown]
  - Malaise [Unknown]
  - Depressed mood [Unknown]
  - Fear [Unknown]
  - Pain [Unknown]
  - Injection site haemorrhage [Recovering/Resolving]
